FAERS Safety Report 21950385 (Version 3)
Quarter: 2023Q4

REPORT INFORMATION
  Report Type: Report from Study
  Country: US (occurrence: US)
  Receive Date: 20230203
  Receipt Date: 20231031
  Transmission Date: 20240110
  Serious: Yes (Other)
  Sender: FDA-Public Use
  Company Number: US-JNJFOC-20230147675

PATIENT
  Age: 31 Year
  Sex: Female
  Weight: 54.7 kg

DRUGS (12)
  1. MESALAMINE [Concomitant]
     Active Substance: MESALAMINE
     Indication: Colitis ulcerative
     Route: 048
     Dates: start: 2016
  2. METOPROLOL [Concomitant]
     Active Substance: METOPROLOL
     Indication: Aortic dissection
     Route: 048
     Dates: start: 202207
  3. ALBUTEROL [Concomitant]
     Active Substance: ALBUTEROL
     Indication: Asthma
     Route: 055
     Dates: start: 1999
  4. ALIGN [Concomitant]
     Active Substance: BIFIDOBACTERIUM LONGUM SUBSP. INFANTIS
     Indication: Supplementation therapy
     Route: 048
     Dates: start: 202009
  5. TYLENOL [Concomitant]
     Active Substance: ACETAMINOPHEN
     Indication: Headache
     Route: 048
     Dates: start: 2002
  6. TYLENOL [Concomitant]
     Active Substance: ACETAMINOPHEN
     Indication: Arthralgia
  7. BIOTIN [Concomitant]
     Active Substance: BIOTIN
     Indication: Supplementation therapy
     Route: 048
     Dates: start: 2013
  8. IRON [Concomitant]
     Active Substance: IRON
     Indication: Supplementation therapy
     Route: 048
     Dates: start: 20210414
  9. GUSELKUMAB [Suspect]
     Active Substance: GUSELKUMAB
     Indication: Colitis ulcerative
     Route: 058
     Dates: start: 20221220
  10. GUSELKUMAB [Suspect]
     Active Substance: GUSELKUMAB
     Route: 058
     Dates: start: 20220923, end: 20220923
  11. GUSELKUMAB [Suspect]
     Active Substance: GUSELKUMAB
  12. GUSELKUMAB [Suspect]
     Active Substance: GUSELKUMAB

REACTIONS (1)
  - Abortion spontaneous [Recovered/Resolved]

NARRATIVE: CASE EVENT DATE: 20230113
